FAERS Safety Report 7641185-3 (Version None)
Quarter: 2011Q3

REPORT INFORMATION
  Report Type: 
  Country: None (occurrence: None)
  Receive Date: 20110728
  Receipt Date: 20110715
  Transmission Date: 20111222
  Serious: Yes (Hospitalization, Other)
  Sender: FDA-Public Use
  Company Number: PHHY2010TW66404

PATIENT
  Sex: Male

DRUGS (6)
  1. VALGANCICLOVIR [Concomitant]
  2. CYCLOSPORINE [Concomitant]
  3. EXJADE [Suspect]
     Indication: IRON OVERLOAD
     Dosage: 1000 MG, UNK
     Dates: start: 20090715
  4. NEUPOGEN [Concomitant]
     Dates: start: 20100930, end: 20101013
  5. TACROLIMUS [Concomitant]
     Dates: start: 20101013
  6. METHYLPREDNISOLONE [Concomitant]
     Dosage: 1 G, QD
     Dates: start: 20101008, end: 20101010

REACTIONS (4)
  - ANAEMIA [None]
  - LEUKOPENIA [None]
  - TRANSPLANT REJECTION [None]
  - PLATELET COUNT DECREASED [None]
